FAERS Safety Report 6433671-9 (Version None)
Quarter: 2009Q4

REPORT INFORMATION
  Report Type: 
  Country: None (occurrence: None)
  Receive Date: 20091106
  Receipt Date: 20091106
  Transmission Date: 20100525
  Serious: Yes (Life-Threatening, Hospitalization)
  Sender: FDA-Public Use
  Company Number: None

PATIENT
  Age: 59 Year
  Sex: Male
  Weight: 69.5 kg

DRUGS (1)
  1. MORPHINE [Suspect]
     Indication: PAIN
     Dosage: 60 MG BID PO
     Route: 048
     Dates: start: 20090810

REACTIONS (3)
  - COLITIS [None]
  - CONSTIPATION [None]
  - SMALL INTESTINAL OBSTRUCTION [None]
